FAERS Safety Report 7344498 (Version 3)
Quarter: 2015Q1

REPORT INFORMATION
  Report Type: Report from Study
  Country: US (occurrence: US)
  Receive Date: 20100405
  Receipt Date: 20150303
  Transmission Date: 20150721
  Serious: Yes (Death, Hospitalization, Other)
  Sender: FDA-Public Use
  Company Number: US-ROCHE-681129

PATIENT
  Age: 56 Year
  Sex: Male
  Weight: 96 kg

DRUGS (22)
  1. BEVACIZUMAB [Suspect]
     Active Substance: BEVACIZUMAB
     Indication: GLIOBLASTOMA MULTIFORME
     Dosage: FREQUENCY REPORTED AS Q 14 DAYS (DAYS 1 AND 5/28 DAY CYCLE)
     Route: 042
  2. BEVACIZUMAB [Suspect]
     Active Substance: BEVACIZUMAB
     Route: 042
  3. BEVACIZUMAB [Suspect]
     Active Substance: BEVACIZUMAB
     Dosage: FREQUENCY: ONCE EVERY 14 DAYS
     Route: 042
  4. TEMODAR [Suspect]
     Active Substance: TEMOZOLOMIDE
     Dosage: REPORTED FREQUENCY: QDX5 EVERY 14 DAYS
     Route: 048
  5. TEMODAR [Suspect]
     Active Substance: TEMOZOLOMIDE
     Dosage: REPORTED FREQUENCY: QDX5 EVERY 14 DAYS
     Route: 048
  6. LOVENOX [Suspect]
     Active Substance: ENOXAPARIN SODIUM
     Indication: PRODUCT USED FOR UNKNOWN INDICATION
     Route: 058
  7. BEVACIZUMAB [Suspect]
     Active Substance: BEVACIZUMAB
     Route: 042
  8. TEMODAR [Suspect]
     Active Substance: TEMOZOLOMIDE
     Route: 048
     Dates: start: 20090616, end: 20091017
  9. TEMODAR [Suspect]
     Active Substance: TEMOZOLOMIDE
     Dosage: FREQUENCY REPORTED AS QDX 5 DAYS (DAYS 1-5 AND 15-19/28 DAY CYCLE)
     Route: 048
     Dates: start: 20091125, end: 20091130
  10. OMEPRAZOLE. [Concomitant]
     Active Substance: OMEPRAZOLE
  11. TYLENOL [Concomitant]
     Active Substance: ACETAMINOPHEN
     Route: 065
  12. BEVACIZUMAB [Suspect]
     Active Substance: BEVACIZUMAB
     Route: 042
  13. NPH INSULIN [Concomitant]
     Active Substance: INSULIN BEEF
     Dosage: DRUG NAME REPORTED AS INSULIN NPH SLIDING SCALE
     Route: 065
  14. KEPPRA [Concomitant]
     Active Substance: LEVETIRACETAM
     Route: 065
  15. DECADRON [Concomitant]
     Active Substance: DEXAMETHASONE
     Route: 065
  16. INSULIN LENTE [Concomitant]
     Dosage: DRUG NAME REPORTED AS INSULIN LENTIS 28 U BID, DOSE: 28 U
     Route: 065
  17. DECADRON [Concomitant]
     Active Substance: DEXAMETHASONE
     Route: 065
  18. TEMODAR [Suspect]
     Active Substance: TEMOZOLOMIDE
     Indication: GLIOBLASTOMA MULTIFORME
     Dosage: FREQUENCY REPORTED AS QDX 5 DAYS (DAYS 1-5 AND 15-19/28 DAY CYCLE)
     Route: 048
  19. GLIPIZIDE. [Concomitant]
     Active Substance: GLIPIZIDE
     Dosage: DOSE: 10 MG AM AND 5 MG PM
     Route: 065
  20. KLONOPIN [Concomitant]
     Active Substance: CLONAZEPAM
     Route: 065
  21. DILANTIN [Concomitant]
     Active Substance: PHENYTOIN
     Route: 065
  22. DECADRON [Concomitant]
     Active Substance: DEXAMETHASONE
     Route: 065

REACTIONS (4)
  - Encephalopathy [Unknown]
  - Cerebral haemorrhage [Fatal]
  - Deep vein thrombosis [Unknown]
  - Seizure [Recovered/Resolved]

NARRATIVE: CASE EVENT DATE: 20091224
